FAERS Safety Report 4524792-6 (Version None)
Quarter: 2004Q4

REPORT INFORMATION
  Report Type: 
  Country: None (occurrence: None)
  Receive Date: 20041208
  Receipt Date: 20030127
  Transmission Date: 20050328
  Serious: Yes (Other)
  Sender: FDA-Public Use
  Company Number: MEDI-0002492

PATIENT
  Age: 65 Year

DRUGS (1)
  1. ETHYOL [Suspect]
     Dosage: SUBCUTANEOUS
     Route: 058
     Dates: end: 20021021

REACTIONS (2)
  - ANAPHYLACTIC REACTION [None]
  - THROAT TIGHTNESS [None]
